FAERS Safety Report 13639232 (Version 1)
Quarter: 2017Q2

REPORT INFORMATION
  Report Type: Spontaneous
  Country: US (occurrence: US)
  Receive Date: 20170609
  Receipt Date: 20170609
  Transmission Date: 20170830
  Serious: No
  Sender: FDA-Public Use
  Company Number: US-ROCHE-1439069

PATIENT
  Sex: Female
  Weight: 68.1 kg

DRUGS (4)
  1. GARLIC. [Concomitant]
     Active Substance: GARLIC
     Dosage: AS NEEDED
     Route: 065
  2. CIDER VINEGAR [Concomitant]
     Route: 065
  3. KRILL OIL [Concomitant]
     Active Substance: DIETARY SUPPLEMENT
     Route: 065
  4. KLONOPIN [Suspect]
     Active Substance: CLONAZEPAM
     Indication: ANXIETY
     Dosage: OCCASIONAL, HALF .5MG TABLET
     Route: 065

REACTIONS (3)
  - Somnolence [Unknown]
  - Feeling abnormal [Unknown]
  - Fatigue [Unknown]
